FAERS Safety Report 18086002 (Version 2)
Quarter: 2020Q3

REPORT INFORMATION
  Report Type: Spontaneous
  Country: US (occurrence: US)
  Receive Date: 20200729
  Receipt Date: 20200930
  Transmission Date: 20201103
  Serious: Yes (Other)
  Sender: FDA-Public Use
  Company Number: US-BION-008882

PATIENT
  Age: 72 Year
  Sex: Female

DRUGS (6)
  1. ASPIRIN. [Concomitant]
     Active Substance: ASPIRIN
  2. CLONIDINE. [Concomitant]
     Active Substance: CLONIDINE
     Indication: HYPERTENSION
     Dosage: TWICE A DAY STRENGTH: 0.1 MG
  3. ATORVASTATIN [Concomitant]
     Active Substance: ATORVASTATIN
     Indication: BLOOD CHOLESTEROL
     Dosage: ONCE A DAY, STRENGTH: 80 MG
  4. ALEVE [Suspect]
     Active Substance: NAPROXEN SODIUM
     Indication: JOINT STIFFNESS
     Dosage: 1 TABLET EVERY 8 HOUR
     Route: 048
  5. ALEVE [Concomitant]
     Active Substance: NAPROXEN SODIUM
  6. ATENOLOL/ATENOLOL HYDROCHLORIDE [Concomitant]
     Active Substance: ATENOLOL HYDROCHLORIDE
     Dosage: TWICE A DAY STRENGTH: 100 MG

REACTIONS (5)
  - Choking [Unknown]
  - Product size issue [Unknown]
  - Product use complaint [Unknown]
  - Incorrect product administration duration [Not Recovered/Not Resolved]
  - Product use in unapproved indication [Not Recovered/Not Resolved]
